FAERS Safety Report 8246260-0 (Version None)
Quarter: 2012Q1

REPORT INFORMATION
  Report Type: 
  Country: None (occurrence: None)
  Receive Date: 20120330
  Receipt Date: 20120321
  Transmission Date: 20120608
  Serious: Yes (Hospitalization)
  Sender: FDA-Public Use
  Company Number: US-BAYER-2011-063050

PATIENT
  Age: 30 Year
  Sex: Female
  Weight: 58.957 kg

DRUGS (16)
  1. YAZ [Suspect]
     Dosage: UNK
     Dates: start: 20071001, end: 20090805
  2. CLEOCIN HYDROCHLORIDE [Concomitant]
     Indication: VAGINITIS BACTERIAL
     Dosage: 100 MG, UNK
     Route: 067
     Dates: start: 20090701
  3. FLUOXETINE [Concomitant]
     Indication: ANXIETY
  4. ASPIRIN [Concomitant]
  5. DROSPIRENONE AND ETHINYL ESTRADIOL [Suspect]
     Dosage: UNK
     Dates: start: 20071001, end: 20090805
  6. FLUCONAZOLE [Concomitant]
     Dosage: 150 MG, UNK
     Route: 048
  7. RELPAX [Concomitant]
  8. PRILOSEC [Concomitant]
     Route: 048
  9. SINGULAIR [Concomitant]
     Route: 048
  10. CLEOCIN HYDROCHLORIDE [Concomitant]
     Indication: VULVOVAGINAL CANDIDIASIS
  11. PROAIR HFA [Concomitant]
     Dosage: 90 MCG
     Route: 055
  12. LORATADINE [Concomitant]
     Route: 048
  13. TOPAMAX [Concomitant]
     Indication: MIGRAINE
  14. LEVOTHYROXINE SODIUM [Concomitant]
     Indication: ANXIETY
  15. FLUOXETINE [Concomitant]
     Indication: DEPRESSION
     Dosage: 10 MG, UNK
     Route: 048
  16. LEVOTHYROXINE SODIUM [Concomitant]
     Indication: DEPRESSION
     Dosage: 70 MCG
     Route: 048

REACTIONS (6)
  - CEREBROVASCULAR ACCIDENT [None]
  - EMOTIONAL DISTRESS [None]
  - PSYCHOLOGICAL TRAUMA [None]
  - FEAR [None]
  - ANXIETY [None]
  - PAIN [None]
